FAERS Safety Report 25930315 (Version 1)
Quarter: 2025Q4

REPORT INFORMATION
  Report Type: Spontaneous
  Country: US (occurrence: None)
  Receive Date: 20251015
  Receipt Date: 20251015
  Transmission Date: 20260118
  Serious: Yes (Life-Threatening, Hospitalization, Disabling, Other)
  Sender: FDA-CTU
  Company Number: None

PATIENT
  Age: 36 Year
  Sex: Male
  Weight: 130.5 kg

DRUGS (5)
  1. PAXIL [Suspect]
     Active Substance: PAROXETINE HYDROCHLORIDE
     Indication: Depression
     Dosage: OTHER QUANTITY : 1 CAPSULE(S);?FREQUENCY : DAILY;?
     Route: 048
  2. Bipap machine [Concomitant]
  3. Inspire sleep device [Concomitant]
  4. PAROXETINE [Concomitant]
     Active Substance: PAROXETINE
  5. CITALOPRAM [Suspect]
     Active Substance: CITALOPRAM

REACTIONS (17)
  - Quality of life scale [None]
  - Agoraphobia [None]
  - Akathisia [None]
  - Intrusive thoughts [None]
  - Suicidal ideation [None]
  - Insomnia [None]
  - Homicidal ideation [None]
  - Decreased appetite [None]
  - Skin burning sensation [None]
  - Weight increased [None]
  - Myalgia [None]
  - Disability [None]
  - Pollakiuria [None]
  - Loss of libido [None]
  - Brain fog [None]
  - Muscle spasms [None]
  - Muscle twitching [None]

NARRATIVE: CASE EVENT DATE: 20200701
